FAERS Safety Report 9034404 (Version 1)
Quarter: 2013Q1

REPORT INFORMATION
  Report Type: Spontaneous
  Country: US (occurrence: None)
  Receive Date: 20130116
  Receipt Date: 20130116
  Transmission Date: 20140127
  Serious: Yes (Other)
  Sender: FDA-Public Use
  Company Number: None

PATIENT
  Age: 37 Year
  Sex: Male
  Weight: 95.5 kg

DRUGS (1)
  1. LAMOTRIGINE [Suspect]
     Indication: EPILEPSY
     Dosage: 200 MG  3 X PER DAY  ORALLY
     Route: 048
     Dates: start: 20130108

REACTIONS (3)
  - Product substitution issue [None]
  - Product quality issue [None]
  - Grand mal convulsion [None]
